FAERS Safety Report 24682977 (Version 1)
Quarter: 2024Q4

REPORT INFORMATION
  Report Type: Spontaneous
  Country: BE (occurrence: BE)
  Receive Date: 20241201
  Receipt Date: 20241201
  Transmission Date: 20250114
  Serious: Yes (Other)
  Sender: JOHNSON AND JOHNSON
  Company Number: None

PATIENT
  Age: 15 Year
  Sex: Male
  Weight: 70 kg

DRUGS (1)
  1. RISPERDAL [Suspect]
     Active Substance: RISPERIDONE
     Indication: Product used for unknown indication
     Dosage: ONCE
     Route: 048

REACTIONS (5)
  - Apathy [Not Recovered/Not Resolved]
  - Ataxia [Not Recovered/Not Resolved]
  - Vertigo [Unknown]
  - Product use issue [Unknown]
  - Overdose [Unknown]
